FAERS Safety Report 9870269 (Version 2)
Quarter: 2014Q1

REPORT INFORMATION
  Report Type: Report from Study
  Country: US (occurrence: US)
  Receive Date: 20140205
  Receipt Date: 20140205
  Transmission Date: 20141002
  Serious: Yes (Death, Hospitalization)
  Sender: FDA-Public Use
  Company Number: US-ACTELION-A-NJ2013-92177

PATIENT
  Age: 50 Year
  Sex: Male

DRUGS (4)
  1. TRACLEER [Suspect]
     Indication: PULMONARY ARTERIAL HYPERTENSION
     Route: 048
  2. VELETRI [Suspect]
     Indication: PULMONARY ARTERIAL HYPERTENSION
     Route: 041
  3. RIOCIGUAT [Concomitant]
  4. ADCIRCA [Concomitant]

REACTIONS (3)
  - Right ventricular failure [Fatal]
  - Malaise [Unknown]
  - Drug ineffective [Unknown]
